FAERS Safety Report 6921186-0 (Version None)
Quarter: 2010Q3

REPORT INFORMATION
  Report Type: 
  Country: None (occurrence: None)
  Receive Date: 20100812
  Receipt Date: 20100803
  Transmission Date: 20110219
  Serious: Yes (Hospitalization)
  Sender: FDA-Public Use
  Company Number: A0817540A

PATIENT
  Age: 60 Year
  Sex: Male

DRUGS (1)
  1. AVANDIA [Suspect]
     Indication: DIABETES MELLITUS
     Dosage: 2MG PER DAY
     Route: 048
     Dates: start: 20020101, end: 20071201

REACTIONS (4)
  - ANGIOPLASTY [None]
  - CORONARY ARTERY OCCLUSION [None]
  - PAIN [None]
  - STENT PLACEMENT [None]
